FAERS Safety Report 6279777-9 (Version None)
Quarter: 2009Q3

REPORT INFORMATION
  Report Type: 
  Country: None (occurrence: None)
  Receive Date: 20090723
  Receipt Date: 20090720
  Transmission Date: 20100115
  Serious: Yes (Death)
  Sender: FDA-Public Use
  Company Number: PL-BAYER-200924901GPV

PATIENT
  Age: 62 Year
  Sex: Male
  Weight: 92 kg

DRUGS (1)
  1. ULTRAVIST 300 [Suspect]
     Indication: COMPUTERISED TOMOGRAM THORAX
     Dosage: UNIT DOSE: 100 ML
     Route: 042
     Dates: start: 20090706, end: 20090706

REACTIONS (2)
  - CARDIAC ARREST [None]
  - RESPIRATORY ARREST [None]
